FAERS Safety Report 4755417-2 (Version None)
Quarter: 2005Q3

REPORT INFORMATION
  Report Type: 
  Country: None (occurrence: None)
  Receive Date: 20050826
  Receipt Date: 20050826
  Transmission Date: 20060218
  Serious: Yes (Hospitalization, Disabling, Other)
  Sender: FDA-Public Use
  Company Number: None

PATIENT
  Age: 14 Year
  Sex: Female
  Weight: 43.0917 kg

DRUGS (1)
  1. GABITRIL [Suspect]
     Indication: ANXIETY
     Dosage: 4 MG TWICE A DAY FOR 3 DAYS 8 MG TWICE A DAY FOR X 3 DAYS 12 MG ONCE IN THE MORNING
     Dates: start: 20050810, end: 20050820

REACTIONS (1)
  - EPILEPSY [None]
